FAERS Safety Report 17012414 (Version 1)
Quarter: 2019Q4

REPORT INFORMATION
  Report Type: Spontaneous
  Country: CA (occurrence: CA)
  Receive Date: 20191108
  Receipt Date: 20191108
  Transmission Date: 20200122
  Serious: Yes (Death, Disabling)
  Sender: FDA-Public Use
  Company Number: CA-B.I. PHARMACEUTICALS,INC./RIDGEFIELD-2019-BI-112572

PATIENT
  Age: 63 Year
  Sex: Male

DRUGS (7)
  1. CODEINE [Suspect]
     Active Substance: CODEINE
     Indication: CHEST PAIN
     Route: 065
  2. CODEINE [Suspect]
     Active Substance: CODEINE
     Indication: COUGH
     Route: 065
  3. IMODIUM [Concomitant]
     Active Substance: LOPERAMIDE HYDROCHLORIDE
     Indication: PRODUCT USED FOR UNKNOWN INDICATION
     Route: 065
  4. CANNABIS [Concomitant]
     Active Substance: CANNABIS SATIVA SUBSP. INDICA TOP
     Indication: PRODUCT USED FOR UNKNOWN INDICATION
     Route: 065
  5. GILOTRIF [Suspect]
     Active Substance: AFATINIB
     Route: 048
  6. CANNABIS SATIVA [Concomitant]
     Active Substance: CANNABIS SATIVA FLOWERING TOP
     Indication: PRODUCT USED FOR UNKNOWN INDICATION
     Route: 065
  7. GILOTRIF [Suspect]
     Active Substance: AFATINIB
     Indication: PRODUCT USED FOR UNKNOWN INDICATION
     Route: 048

REACTIONS (21)
  - Pruritus [Fatal]
  - Rash papular [Fatal]
  - Asthenia [Fatal]
  - Rash [Fatal]
  - Appetite disorder [Fatal]
  - Constipation [Fatal]
  - Cough [Fatal]
  - Diarrhoea [Fatal]
  - Irritability [Fatal]
  - Vomiting [Fatal]
  - Back pain [Fatal]
  - Decreased appetite [Fatal]
  - Nervousness [Fatal]
  - Weight decreased [Fatal]
  - Malignant neoplasm progression [Fatal]
  - Confusional state [Fatal]
  - Memory impairment [Fatal]
  - Feeling cold [Fatal]
  - Headache [Fatal]
  - Mucosal inflammation [Fatal]
  - Nausea [Fatal]
